FAERS Safety Report 8118466-2 (Version None)
Quarter: 2012Q1

REPORT INFORMATION
  Report Type: 
  Country: None (occurrence: None)
  Receive Date: 20120201
  Receipt Date: 20100721
  Transmission Date: 20120608
  Serious: Yes (Hospitalization)
  Sender: FDA-Public Use
  Company Number: 2010003772

PATIENT
  Age: 22 Year
  Sex: Female

DRUGS (4)
  1. PREDNISOLONE [Suspect]
     Indication: CONDITION AGGRAVATED
  2. PREDNISOLONE [Suspect]
     Indication: ASTHMA
  3. ERYMAX [Suspect]
     Indication: ASTHMA
  4. ERYMAX [Suspect]
     Indication: CONDITION AGGRAVATED

REACTIONS (9)
  - PREMATURE DELIVERY [None]
  - CAESAREAN SECTION [None]
  - KETOACIDOSIS [None]
  - MALAISE [None]
  - MATERNAL EXPOSURE DURING PREGNANCY [None]
  - SINUS TACHYCARDIA [None]
  - VOMITING [None]
  - KUSSMAUL RESPIRATION [None]
  - HYPERTENSION [None]
